FAERS Safety Report 13603992 (Version 1)
Quarter: 2017Q2

REPORT INFORMATION
  Report Type: Spontaneous
  Country: US (occurrence: US)
  Receive Date: 20170602
  Receipt Date: 20170602
  Transmission Date: 20170830
  Serious: No
  Sender: FDA-Public Use
  Company Number: US-VIFOR (INTERNATIONAL) INC.-VIT-2017-05320

PATIENT
  Age: 89 Year
  Sex: Male
  Weight: 70 kg

DRUGS (2)
  1. MIRCERA [Suspect]
     Active Substance: METHOXY POLYETHYLENE GLYCOL-EPOETIN BETA
     Indication: PRODUCT USED FOR UNKNOWN INDICATION
     Dosage: 1 TOTAL
  2. HEPARIN [Concomitant]
     Active Substance: HEPARIN SODIUM
     Route: 040

REACTIONS (3)
  - Laryngospasm [Unknown]
  - Urticaria [Unknown]
  - Dyspnoea [Unknown]

NARRATIVE: CASE EVENT DATE: 20170427
